FAERS Safety Report 6437431-4 (Version None)
Quarter: 2009Q4

REPORT INFORMATION
  Report Type: 
  Country: None (occurrence: None)
  Receive Date: 20091112
  Receipt Date: 20081008
  Transmission Date: 20100525
  Serious: No
  Sender: FDA-Public Use
  Company Number: US-ASTRAZENECA-2009UW15433

PATIENT
  Age: 45 Year
  Sex: Female

DRUGS (4)
  1. PRILOSEC OTC [Suspect]
     Indication: DYSPEPSIA
     Dosage: 1 TABLET, UNK FREQ
     Route: 048
     Dates: start: 20080824
  2. WELCHOL [Concomitant]
     Indication: BLOOD CHOLESTEROL INCREASED
  3. ATENOLOL [Concomitant]
     Indication: HYPERTENSION
  4. LISINOPRIL [Concomitant]
     Indication: HYPERTENSION

REACTIONS (2)
  - COUGH [None]
  - INCORRECT DRUG ADMINISTRATION DURATION [None]
